FAERS Safety Report 13684307 (Version 1)
Quarter: 2017Q2

REPORT INFORMATION
  Report Type: Spontaneous
  Country: US (occurrence: US)
  Receive Date: 20170623
  Receipt Date: 20170623
  Transmission Date: 20170830
  Serious: No
  Sender: FDA-Public Use
  Company Number: US-IPSEN BIOPHARMACEUTICALS, INC.-2016-09841

PATIENT
  Age: 65 Year
  Sex: Female
  Weight: 58.05 kg

DRUGS (6)
  1. DYSPORT [Suspect]
     Active Substance: ABOBOTULINUMTOXINA
     Indication: SKIN WRINKLING
     Dosage: 60 UNITS
     Route: 058
     Dates: start: 20161021, end: 20161021
  2. FISH OIL [Concomitant]
     Active Substance: FISH OIL
  3. IODINE. [Concomitant]
     Active Substance: IODINE
  4. VITAMIN C [Concomitant]
     Active Substance: ASCORBIC ACID
  5. VITAMIN D3 [Concomitant]
     Active Substance: CHOLECALCIFEROL
  6. MAGNESIUM [Concomitant]
     Active Substance: MAGNESIUM

REACTIONS (4)
  - Eyelid ptosis [Not Recovered/Not Resolved]
  - Eyelid oedema [Recovered/Resolved]
  - Incorrect route of drug administration [Unknown]
  - Product preparation error [Unknown]

NARRATIVE: CASE EVENT DATE: 20161028
